FAERS Safety Report 6646871-X (Version None)
Quarter: 2010Q1

REPORT INFORMATION
  Report Type: 
  Country: None (occurrence: None)
  Receive Date: 20100323
  Receipt Date: 20100311
  Transmission Date: 20100710
  Serious: Yes (Other)
  Sender: FDA-Public Use
  Company Number: GB-PFIZER INC-2010032204

PATIENT

DRUGS (1)
  1. LYRICA [Suspect]
     Dosage: 100 MG, 1X/DAY

REACTIONS (2)
  - SEDATION [None]
  - SOMNOLENCE [None]
